FAERS Safety Report 20938244 (Version 1)
Quarter: 2022Q2

REPORT INFORMATION
  Report Type: Spontaneous
  Country: US (occurrence: None)
  Receive Date: 20220608
  Receipt Date: 20220608
  Transmission Date: 20220721
  Serious: Yes (Life-Threatening, Disabling, Other)
  Sender: FDA-Public Use
  Company Number: None

PATIENT
  Age: 85 Year
  Sex: Female
  Weight: 49.5 kg

DRUGS (13)
  1. BONIVA [Suspect]
     Active Substance: IBANDRONATE SODIUM
     Indication: Osteoporosis
     Dosage: FREQUENCY : MONTHLY;?QUANTITY: 18 TABLETS
     Route: 048
  2. Ethacrynic [Concomitant]
  3. Spronolone [Concomitant]
  4. Sildenafile [Concomitant]
  5. Metpolol [Concomitant]
  6. Apsrin [Concomitant]
  7. LEVOTHYROXINE [Concomitant]
     Active Substance: LEVOTHYROXINE
  8. HUMALOG [Concomitant]
     Active Substance: INSULIN LISPRO
  9. LANTUS [Concomitant]
     Active Substance: INSULIN GLARGINE
  10. VITAMIN C [Concomitant]
     Active Substance: ASCORBIC ACID
  11. Vitamin D3-K2 [Concomitant]
  12. Vitamin magnesium [Concomitant]
  13. POTASSIUM CHLORIDE [Concomitant]
     Active Substance: POTASSIUM CHLORIDE

REACTIONS (29)
  - Osteonecrosis [None]
  - Ear pain [None]
  - Rhinorrhoea [None]
  - Dysphonia [None]
  - Urticaria [None]
  - Dizziness [None]
  - Cough [None]
  - Depressed mood [None]
  - Arthralgia [None]
  - Dizziness [None]
  - Asthenia [None]
  - Myalgia [None]
  - Musculoskeletal stiffness [None]
  - Swelling [None]
  - Nasal congestion [None]
  - Cold sweat [None]
  - Headache [None]
  - Gingivitis [None]
  - Weight decreased [None]
  - Paraesthesia [None]
  - Decreased interest [None]
  - Vertigo [None]
  - Disturbance in attention [None]
  - Insomnia [None]
  - Pain in extremity [None]
  - Abdominal tenderness [None]
  - Hypophagia [None]
  - Dysphagia [None]
  - Tooth disorder [None]

NARRATIVE: CASE EVENT DATE: 20220601
